FAERS Safety Report 14536327 (Version 1)
Quarter: 2018Q1

REPORT INFORMATION
  Report Type: Spontaneous
  Country: US (occurrence: US)
  Receive Date: 20180215
  Receipt Date: 20180215
  Transmission Date: 20180509
  Serious: Yes (Other)
  Sender: FDA-Public Use
  Company Number: US-BAYER-2018-024958

PATIENT
  Age: 67 Year
  Sex: Female
  Weight: 103.99 kg

DRUGS (8)
  1. BAYER ASPIRIN [Suspect]
     Active Substance: ASPIRIN
     Indication: ARTHRALGIA
  2. VITAMIN B12 [Concomitant]
     Active Substance: CYANOCOBALAMIN
     Dosage: UNK
  3. ALKA-SELTZER PLUS COLD SPARKLING ORIGINAL [Suspect]
     Active Substance: ASPIRIN\CHLORPHENIRAMINE MALEATE\PHENYLEPHRINE BITARTRATE
     Indication: HYPERSENSITIVITY
     Dosage: 2 DF, BID
     Route: 048
     Dates: start: 20180202
  4. VITAMIN D [Concomitant]
     Active Substance: CHOLECALCIFEROL
     Dosage: UNK
  5. BAYER ASPIRIN [Suspect]
     Active Substance: ASPIRIN
     Indication: PAIN
     Dosage: 2 DF, QD
     Route: 048
  6. ALKA-SELTZER PLUS COLD SPARKLING ORIGINAL [Suspect]
     Active Substance: ASPIRIN\CHLORPHENIRAMINE MALEATE\PHENYLEPHRINE BITARTRATE
     Indication: NASOPHARYNGITIS
  7. MULTIVITAMIN [Concomitant]
     Active Substance: VITAMINS
     Dosage: UNK
  8. VITAMIN C [Concomitant]
     Active Substance: ASCORBIC ACID
     Dosage: UNK

REACTIONS (3)
  - Therapeutic response unexpected [Not Recovered/Not Resolved]
  - Gastric haemorrhage [Not Recovered/Not Resolved]
  - Ulcer [Not Recovered/Not Resolved]

NARRATIVE: CASE EVENT DATE: 2010
